FAERS Safety Report 4272640-4 (Version None)
Quarter: 2004Q1

REPORT INFORMATION
  Report Type: 
  Country: None (occurrence: None)
  Receive Date: 20040114
  Receipt Date: 20040114
  Transmission Date: 20041129
  Serious: No
  Sender: FDA-Public Use
  Company Number: None

PATIENT

DRUGS (1)
  1. PRILOSEC [Suspect]
     Dosage: 1 DAILY
     Dates: start: 20031205, end: 20040106

REACTIONS (2)
  - ABDOMINAL PAIN [None]
  - WHEEZING [None]
